FAERS Safety Report 9345425 (Version 3)
Quarter: 2013Q4

REPORT INFORMATION
  Report Type: Report from Study
  Country: US (occurrence: US)
  Receive Date: 20130613
  Receipt Date: 20131002
  Transmission Date: 20140711
  Serious: Yes (Death, Other)
  Sender: FDA-Public Use
  Company Number: US-ALEXION-A201301298

PATIENT
  Age: 68 Year
  Sex: Female
  Weight: 69.9 kg

DRUGS (1)
  1. SOLIRIS [Suspect]
     Indication: HAEMOLYTIC URAEMIC SYNDROME
     Dosage: 900 MG X 2
     Route: 042
     Dates: start: 20130522

REACTIONS (8)
  - Fall [Unknown]
  - Pancreatic carcinoma metastatic [Fatal]
  - Malignant neoplasm progression [Unknown]
  - Cognitive disorder [Unknown]
  - Agitation [Unknown]
  - Dysphonia [Unknown]
  - Crying [Unknown]
  - Renal impairment [Not Recovered/Not Resolved]
